FAERS Safety Report 6968142-4 (Version None)
Quarter: 2010Q3

REPORT INFORMATION
  Report Type: 
  Country: None (occurrence: None)
  Receive Date: 20100907
  Receipt Date: 20100826
  Transmission Date: 20110219
  Serious: Yes (Hospitalization)
  Sender: FDA-Public Use
  Company Number: B0672986A

PATIENT
  Sex: Female
  Weight: 87.4 kg

DRUGS (18)
  1. AVANDAMET [Suspect]
     Dosage: 500MG TWICE PER DAY
     Route: 048
  2. MARAVIROC [Suspect]
     Indication: HIV INFECTION
     Dosage: 150MG TWICE PER DAY
     Route: 048
     Dates: start: 20050830, end: 20100501
  3. PREZISTA [Suspect]
     Indication: HIV INFECTION
     Dosage: 600MG TWICE PER DAY
     Route: 048
     Dates: start: 20091208, end: 20100502
  4. TRUVADA [Suspect]
     Indication: HIV INFECTION
     Dosage: 200MG PER DAY
     Route: 048
     Dates: start: 20060127, end: 20100502
  5. CRESTOR [Concomitant]
     Dosage: 5MG PER DAY
     Route: 048
  6. RAMIPRIL [Concomitant]
     Dosage: 2.5MG PER DAY
     Route: 048
     Dates: start: 20050805
  7. CALCIUM [Concomitant]
     Dosage: 500MG TWICE PER DAY
     Route: 048
  8. PANTOPRAZOLE [Concomitant]
     Dosage: 40MG PER DAY
     Route: 048
  9. NORVIR [Concomitant]
     Dosage: 100MG TWICE PER DAY
     Route: 048
     Dates: start: 20050906, end: 20100502
  10. IBUPROFEN [Concomitant]
     Dosage: 200MG AS REQUIRED
     Route: 048
     Dates: start: 20091028
  11. ASAPHEN [Concomitant]
     Dosage: 80MG AS REQUIRED
     Route: 048
     Dates: start: 20060216
  12. BISOPROLOL FUMARATE [Concomitant]
     Dosage: 2.5MG PER DAY
     Route: 048
     Dates: start: 20060216, end: 20100503
  13. LANIX [Concomitant]
     Dosage: 20MG PER DAY
     Route: 048
     Dates: start: 20060420
  14. DOMPERIDONE [Concomitant]
     Dosage: 10MG AS REQUIRED
     Route: 048
  15. FLUCONAZOLE [Concomitant]
     Dosage: 200MG PER DAY
     Route: 048
  16. CLOTRIMADERM [Concomitant]
  17. NOVOSEMIDE [Concomitant]
     Route: 048
     Dates: end: 20100502
  18. NOVOLIN 30/70 [Concomitant]
     Route: 058
     Dates: start: 20050803, end: 20100503

REACTIONS (4)
  - BLOOD GLUCOSE INCREASED [None]
  - LACTIC ACIDOSIS [None]
  - PNEUMONIA [None]
  - RENAL FAILURE ACUTE [None]
